FAERS Safety Report 4401795-3 (Version None)
Quarter: 2004Q3

REPORT INFORMATION
  Report Type: 
  Country: None (occurrence: None)
  Receive Date: 20040719
  Receipt Date: 20040706
  Transmission Date: 20050211
  Serious: Yes (Death, Hospitalization)
  Sender: FDA-Public Use
  Company Number: US-MERCK-0407USA00461

PATIENT
  Age: 91 Year
  Sex: Female

DRUGS (13)
  1. TYLENOL W/ CODEINE NO. 4 [Concomitant]
     Route: 065
  2. TAZTIA XT [Concomitant]
     Route: 065
  3. PREMARIN [Concomitant]
     Route: 065
  4. ZETIA [Suspect]
     Route: 048
     Dates: end: 20040101
  5. DURAGESIC [Concomitant]
     Route: 065
  6. FLONASE [Concomitant]
     Route: 065
  7. ADVAIR DISKUS 100/50 [Concomitant]
     Route: 065
  8. LASIX [Concomitant]
     Route: 065
  9. FUROSEMIDE AND POTASSIUM CHLORIDE [Concomitant]
     Route: 065
  10. IMDUR [Concomitant]
     Route: 065
  11. LEVOXYL [Concomitant]
     Route: 065
  12. TOPROL-XL [Concomitant]
     Route: 065
  13. NITROSTAT [Concomitant]
     Route: 065

REACTIONS (2)
  - ADVERSE EVENT [None]
  - CARDIAC FAILURE CONGESTIVE [None]
